FAERS Safety Report 26111733 (Version 2)
Quarter: 2025Q4

REPORT INFORMATION
  Report Type: Spontaneous
  Country: CA (occurrence: CA)
  Receive Date: 20251202
  Receipt Date: 20251229
  Transmission Date: 20260117
  Serious: Yes (Other)
  Sender: BAYER HEALTHCARE PHARMACEUTICALS INC.
  Company Number: CA-BAYER-2025A156496

PATIENT
  Sex: Female

DRUGS (1)
  1. MIRENA [Suspect]
     Active Substance: LEVONORGESTREL
     Indication: Product used for unknown indication
     Dosage: 20?G/DAY
     Route: 015

REACTIONS (1)
  - General physical health deterioration [Unknown]
